FAERS Safety Report 12185761 (Version 1)
Quarter: 2016Q1

REPORT INFORMATION
  Report Type: Spontaneous
  Country: US (occurrence: US)
  Receive Date: 20160316
  Receipt Date: 20160316
  Transmission Date: 20160526
  Serious: No
  Sender: FDA-Public Use
  Company Number: US-WARNER CHILCOTT, LLC-1049224

PATIENT
  Age: 70 Year
  Sex: Female

DRUGS (6)
  1. LOSARTAN. [Concomitant]
     Active Substance: LOSARTAN
  2. FISH OIL [Concomitant]
     Active Substance: FISH OIL
  3. ESTRACE [Suspect]
     Active Substance: ESTRADIOL
     Indication: VULVOVAGINAL DRYNESS
     Route: 067
  4. METOPROLOL. [Concomitant]
     Active Substance: METOPROLOL
  5. MULTIVITAMIN [Concomitant]
     Active Substance: VITAMINS
  6. PROBIOTIC [Concomitant]
     Active Substance: PROBIOTICS NOS

REACTIONS (4)
  - Rhinalgia [Recovered/Resolved]
  - Nasal discomfort [Recovered/Resolved]
  - Inappropriate schedule of drug administration [Recovered/Resolved]
  - Incorrect route of drug administration [Recovered/Resolved]

NARRATIVE: CASE EVENT DATE: 20150507
